FAERS Safety Report 24079129 (Version 1)
Quarter: 2024Q3

REPORT INFORMATION
  Report Type: Spontaneous
  Country: US (occurrence: None)
  Receive Date: 20240710
  Receipt Date: 20240710
  Transmission Date: 20241017
  Serious: Yes (Hospitalization)
  Sender: Public
  Company Number: None

PATIENT
  Age: 62 Year
  Sex: Male
  Weight: 99 kg

DRUGS (1)
  1. ZEPBOUND [Suspect]
     Active Substance: TIRZEPATIDE
     Indication: Weight decreased
     Dosage: OTHER FREQUENCY : 1 AWEEK SHOT;?
     Route: 058

REACTIONS (5)
  - Vomiting projectile [None]
  - Diarrhoea [None]
  - Food poisoning [None]
  - Weight decreased [None]
  - Illness [None]

NARRATIVE: CASE EVENT DATE: 20240629
